FAERS Safety Report 8924496 (Version 2)
Quarter: 2013Q2

REPORT INFORMATION
  Report Type: Spontaneous
  Country: GB (occurrence: GB)
  Receive Date: 20121126
  Receipt Date: 20130523
  Transmission Date: 20140414
  Serious: Yes (Hospitalization, Other)
  Sender: FDA-Public Use
  Company Number: PHHY2012GB090040

PATIENT
  Age: 58 Year
  Sex: Male

DRUGS (24)
  1. METHOTREXATE SODIUM [Suspect]
     Indication: RHEUMATOID ARTHRITIS
     Dates: start: 2005, end: 201011
  2. NICORANDIL [Suspect]
     Dosage: 30 MG, BID
     Route: 048
  3. ACETYLSALICYLIC ACID [Suspect]
  4. ISMN [Suspect]
     Dosage: 60 MG, UNK
  5. ETANERCEPT [Suspect]
     Indication: RHEUMATOID ARTHRITIS
     Dosage: 50 MG, QW
     Route: 058
     Dates: start: 20120420, end: 20120519
  6. PENICILLAMINE [Concomitant]
     Dates: start: 201011
  7. SULFASALAZINE [Concomitant]
     Dates: start: 201110
  8. LIRAGLUTIDE [Concomitant]
     Dosage: 1.2 MG, UNK
     Route: 058
  9. INSULIN [Concomitant]
     Route: 058
  10. AMLODIPINE [Concomitant]
     Dosage: 5 MG, UNK
  11. BISOPROLOL [Concomitant]
     Dosage: 7.5 MG, UNK
  12. CANDESARTAN [Concomitant]
     Dosage: 2 MG, UNK
  13. FUROSEMIDE [Concomitant]
     Dosage: 40 MG, UNK
  14. NIZATIDINE [Concomitant]
     Dosage: 150 MG, UNK
  15. MORPHINE SULPHATE [Concomitant]
     Dosage: 30 MG, UNK
  16. ORAMORPH [Concomitant]
     Dosage: 5 ML, PRN MAX 1 HOURLY
  17. PARACETAMOL [Concomitant]
     Dosage: 1 MG, PRN,4-6 HRLY
  18. GTN [Concomitant]
     Dosage: 2 PUFFS PRN
  19. SALBUTAMOL [Concomitant]
     Dosage: 2 DF, PRN
  20. RIVAROXABAN [Concomitant]
     Dosage: 20 MG, UNK
     Dates: start: 201207
  21. AMITRIPTYLINE [Concomitant]
     Dosage: 20 MG, UNK
  22. GABAPENTIN [Concomitant]
     Dosage: 300 MG, UNK
     Dates: start: 201207
  23. ATORVASTATIN CALCIUM [Concomitant]
     Dosage: 40 MG, UNK
  24. PIZOTIFEN [Concomitant]
     Dosage: 500 UG, UNK

REACTIONS (13)
  - Staphylococcal infection [Unknown]
  - Chills [Unknown]
  - Pyrexia [Unknown]
  - Cellulitis [Unknown]
  - Catheter site cellulitis [Unknown]
  - Aortic valve disease mixed [Unknown]
  - Chest pain [Unknown]
  - Myocardial ischaemia [Unknown]
  - Angina pectoris [Recovered/Resolved]
  - Troponin T increased [Unknown]
  - Thrombocytopenia [Unknown]
  - Tonsillar ulcer [Unknown]
  - Drug ineffective [Unknown]
